FAERS Safety Report 13071281 (Version 1)
Quarter: 2016Q4

REPORT INFORMATION
  Report Type: Spontaneous
  Country: CN (occurrence: CN)
  Receive Date: 20161229
  Receipt Date: 20161229
  Transmission Date: 20170207
  Serious: Yes (Hospitalization)
  Sender: FDA-Public Use
  Company Number: CN-ASTRAZENECA-2016SF37231

PATIENT
  Age: 29456 Day
  Sex: Female

DRUGS (2)
  1. MEPEM [Suspect]
     Active Substance: MEROPENEM
     Indication: PYELONEPHRITIS CHRONIC
     Route: 042
     Dates: start: 20160909, end: 20160927
  2. WEI DE SI [Suspect]
     Active Substance: VALACYCLOVIR HYDROCHLORIDE
     Route: 048
     Dates: start: 20160914, end: 20160927

REACTIONS (4)
  - Atrioventricular block first degree [Recovered/Resolved]
  - Encephalopathy [Recovered/Resolved]
  - Sinus bradycardia [Recovered/Resolved]
  - Hyperhidrosis [Recovered/Resolved]

NARRATIVE: CASE EVENT DATE: 20160928
